FAERS Safety Report 19666428 (Version 1)
Quarter: 2021Q3

REPORT INFORMATION
  Report Type: Spontaneous
  Country: US (occurrence: US)
  Receive Date: 20210806
  Receipt Date: 20210806
  Transmission Date: 20211014
  Serious: No
  Sender: FDA-Public Use
  Company Number: None

PATIENT
  Age: 59 Year
  Sex: Female

DRUGS (1)
  1. TEMOZOLOMIDE CAP [Suspect]
     Active Substance: TEMOZOLOMIDE
     Dosage: ?          OTHER FREQUENCY:N/A ;?
     Route: 048
     Dates: start: 20210701

REACTIONS (2)
  - Thrombosis [None]
  - Pulmonary thrombosis [None]

NARRATIVE: CASE EVENT DATE: 20210722
